FAERS Safety Report 14324263 (Version 2)
Quarter: 2017Q4

REPORT INFORMATION
  Report Type: Report from Study
  Country: US (occurrence: US)
  Receive Date: 20171226
  Receipt Date: 20171228
  Transmission Date: 20180321
  Serious: Yes (Other)
  Sender: FDA-Public Use
  Company Number: US-ASTELLAS-2017US054727

PATIENT
  Age: 59 Year
  Sex: Male

DRUGS (1)
  1. TACROLIMUS. [Suspect]
     Active Substance: TACROLIMUS
     Indication: RENAL TRANSPLANT
     Dosage: 1 MILLIGRAM CAPSULES/ FOUR EVERY MORNING AND THREE EVERY EVENING
     Route: 048
     Dates: start: 20100201

REACTIONS (5)
  - Cataract [Unknown]
  - Strabismus [Unknown]
  - Macular degeneration [Unknown]
  - Retinal detachment [Unknown]
  - Blindness [Unknown]

NARRATIVE: CASE EVENT DATE: 201703
